FAERS Safety Report 22532064 (Version 18)
Quarter: 2025Q2

REPORT INFORMATION
  Report Type: Report from Study
  Country: US (occurrence: US)
  Receive Date: 20230607
  Receipt Date: 20250627
  Transmission Date: 20250716
  Serious: Yes (Other)
  Sender: TAKEDA
  Company Number: US-TAKEDA-2021TUS080664

PATIENT
  Age: 57 Year
  Sex: Female
  Weight: 67 kg

DRUGS (34)
  1. HUMAN IMMUNOGLOBULIN G [Suspect]
     Active Substance: HUMAN IMMUNOGLOBULIN G
     Indication: Immunodeficiency common variable
     Dosage: 15 GRAM, 1/WEEK
     Dates: start: 20211202
  2. HUMAN IMMUNOGLOBULIN G [Suspect]
     Active Substance: HUMAN IMMUNOGLOBULIN G
     Indication: Primary immunodeficiency syndrome
     Dosage: 8 GRAM, 1/WEEK
  3. HUMAN IMMUNOGLOBULIN G [Suspect]
     Active Substance: HUMAN IMMUNOGLOBULIN G
     Dosage: 10 GRAM, 1/WEEK
     Dates: start: 20220302
  4. HUMAN IMMUNOGLOBULIN G [Suspect]
     Active Substance: HUMAN IMMUNOGLOBULIN G
  5. HUMAN IMMUNOGLOBULIN G [Suspect]
     Active Substance: HUMAN IMMUNOGLOBULIN G
     Dosage: 15 GRAM, 1/WEEK
  6. ACETAMINOPHEN [Concomitant]
     Active Substance: ACETAMINOPHEN
  7. CANDESARTAN CILEXETIL [Concomitant]
     Active Substance: CANDESARTAN CILEXETIL
  8. PLAQUENIL [Concomitant]
     Active Substance: HYDROXYCHLOROQUINE SULFATE
  9. MELOXICAM [Concomitant]
     Active Substance: MELOXICAM
  10. BUSPIRONE HCL [Concomitant]
     Active Substance: BUSPIRONE HYDROCHLORIDE
  11. ZYRTEC [Concomitant]
     Active Substance: CETIRIZINE HYDROCHLORIDE
  12. SAPHNELO [Concomitant]
     Active Substance: ANIFROLUMAB-FNIA
  13. HYDROCHLOROTHIAZIDE\TRIAMTERENE [Concomitant]
     Active Substance: HYDROCHLOROTHIAZIDE\TRIAMTERENE
  14. ALBUTEROL SULFATE [Concomitant]
     Active Substance: ALBUTEROL SULFATE
  15. LEVOTHYROXINE [Concomitant]
     Active Substance: LEVOTHYROXINE
  16. FLUTICASONE PROPIONATE [Concomitant]
     Active Substance: FLUTICASONE PROPIONATE
  17. IMITREX [Concomitant]
     Active Substance: SUMATRIPTAN SUCCINATE
  18. PREDNISONE [Concomitant]
     Active Substance: PREDNISONE
  19. CYCLOBENZAPRINE HYDROCHLORIDE [Concomitant]
     Active Substance: CYCLOBENZAPRINE HYDROCHLORIDE
  20. DIPHENHYDRAMINE HYDROCHLORIDE [Concomitant]
     Active Substance: DIPHENHYDRAMINE HYDROCHLORIDE
  21. Lmx [Concomitant]
  22. VITAMIN B COMPLEX [Concomitant]
     Active Substance: CYANOCOBALAMIN\DEXPANTHENOL\NIACINAMIDE\PYRIDOXINE HYDROCHLORIDE\RIBOFLAVIN 5^-PHOSPHATE SODIUM\THIA
  23. EPINEPHRINE [Concomitant]
     Active Substance: EPINEPHRINE
  24. LEVAQUIN [Concomitant]
     Active Substance: LEVOFLOXACIN
  25. VITAMIN D3 [Concomitant]
     Active Substance: CHOLECALCIFEROL
  26. TESTOSTERONE CYPIONATE [Concomitant]
     Active Substance: TESTOSTERONE CYPIONATE
  27. VITAMIN K [Concomitant]
     Active Substance: PHYTONADIONE
  28. UNSPECIFIED INGREDIENT [Concomitant]
     Active Substance: UNSPECIFIED INGREDIENT
  29. SERRAPEPTASE [Concomitant]
     Active Substance: SERRAPEPTASE
  30. CYCLOBENZAPRINE [Concomitant]
     Active Substance: CYCLOBENZAPRINE
  31. CANDESARTAN [Concomitant]
     Active Substance: CANDESARTAN
  32. FLUTICASONE [Concomitant]
     Active Substance: FLUTICASONE
  33. Vitamin k2 + d3 [Concomitant]
  34. PROGESTERONE [Concomitant]
     Active Substance: PROGESTERONE

REACTIONS (37)
  - Pneumonia [Unknown]
  - Dermatitis contact [Unknown]
  - Respiratory tract infection [Unknown]
  - Inflammation [Not Recovered/Not Resolved]
  - Facial pain [Not Recovered/Not Resolved]
  - Toothache [Not Recovered/Not Resolved]
  - Rhinalgia [Not Recovered/Not Resolved]
  - Mucosal hypertrophy [Unknown]
  - Eye infection [Unknown]
  - Lung disorder [Unknown]
  - Allergic sinusitis [Not Recovered/Not Resolved]
  - Seasonal allergy [Unknown]
  - Nasopharyngitis [Unknown]
  - Arthritis [Unknown]
  - Illness [Unknown]
  - Pyrexia [Unknown]
  - Blood pressure abnormal [Unknown]
  - Vertigo [Unknown]
  - Hypersensitivity [Unknown]
  - Headache [Recovered/Resolved]
  - Head discomfort [Unknown]
  - Nervousness [Unknown]
  - Sinus disorder [Unknown]
  - Emotional disorder [Unknown]
  - Feeling jittery [Unknown]
  - Product dose omission issue [Unknown]
  - Product dispensing error [Unknown]
  - Thyroid hormones decreased [Unknown]
  - Dust allergy [Unknown]
  - Upper respiratory tract infection [Unknown]
  - Palpitations [Unknown]
  - Feeling abnormal [Unknown]
  - Anxiety [Unknown]
  - Fatigue [Not Recovered/Not Resolved]
  - Sinusitis [Unknown]
  - Malaise [Unknown]
  - Blood pressure increased [Unknown]

NARRATIVE: CASE EVENT DATE: 20220406
